FAERS Safety Report 11314285 (Version 2)
Quarter: 2015Q3

REPORT INFORMATION
  Report Type: Spontaneous
  Country: US (occurrence: US)
  Receive Date: 20150727
  Receipt Date: 20150812
  Transmission Date: 20151125
  Serious: No
  Sender: FDA-Public Use
  Company Number: US-SHIRE-US201508855

PATIENT
  Age: 13 Year
  Sex: Female
  Weight: 36.28 kg

DRUGS (4)
  1. PENTASA [Suspect]
     Active Substance: MESALAMINE
     Dosage: 1000 MG, 3X/DAY:TID
     Route: 048
     Dates: start: 201308, end: 201506
  2. IRON                               /00023503/ [Concomitant]
     Active Substance: IRON
     Indication: SERUM FERRITIN DECREASED
     Dosage: UNK, UNKNOWN
     Route: 048
     Dates: start: 2011
  3. PENTASA [Suspect]
     Active Substance: MESALAMINE
     Dosage: 1250 MG, 3X/DAY:TID
     Route: 048
     Dates: start: 201506
  4. PENTASA [Suspect]
     Active Substance: MESALAMINE
     Indication: CROHN^S DISEASE
     Dosage: 750 MG, 3X/DAY:TID
     Route: 048
     Dates: start: 201109, end: 201308

REACTIONS (6)
  - Condition aggravated [Recovering/Resolving]
  - Serum ferritin decreased [Recovering/Resolving]
  - Weight increased [Not Recovered/Not Resolved]
  - Body height increased [Not Recovered/Not Resolved]
  - Drug administered to patient of inappropriate age [Not Recovered/Not Resolved]
  - Product use issue [Not Recovered/Not Resolved]

NARRATIVE: CASE EVENT DATE: 201109
